FAERS Safety Report 10080785 (Version 2)
Quarter: 2014Q2

REPORT INFORMATION
  Report Type: Spontaneous
  Country: US (occurrence: US)
  Receive Date: 20140416
  Receipt Date: 20140530
  Transmission Date: 20141212
  Serious: Yes (Other)
  Sender: FDA-Public Use
  Company Number: US-ELI_LILLY_AND_COMPANY-US201404002002

PATIENT
  Sex: Male

DRUGS (16)
  1. HUMALOG 25% LISPRO, 75% NPL [Suspect]
     Indication: DIABETES MELLITUS
     Dosage: UNK, BID
     Route: 065
  2. NOVOLOG [Concomitant]
  3. AMLODIPINE BESILATE [Concomitant]
  4. BENAZEPRIL HCL [Concomitant]
  5. SYNTHROID [Concomitant]
  6. LOZOL [Concomitant]
  7. AMLODIPINE BESYLATE [Concomitant]
  8. POTASSIUM CHLORIDE [Concomitant]
  9. LIPITOR [Concomitant]
  10. PRADAXA [Concomitant]
  11. ASA [Concomitant]
     Dosage: 81 MG, UNK
  12. FISH OIL [Concomitant]
  13. VITAMIN D                          /00107901/ [Concomitant]
  14. METENIX [Concomitant]
  15. LEVOFLOXACIN [Concomitant]
  16. AZOR                               /00595201/ [Concomitant]

REACTIONS (1)
  - Age-related macular degeneration [Unknown]
